FAERS Safety Report 5213609-2 (Version None)
Quarter: 2007Q1

REPORT INFORMATION
  Report Type: 
  Country: None (occurrence: None)
  Receive Date: 20070119
  Receipt Date: 20070109
  Transmission Date: 20070707
  Serious: Yes (Hospitalization)
  Sender: FDA-Public Use
  Company Number: JP-ABBOTT-06P-087-0352717-00

PATIENT
  Sex: Male
  Weight: 29.6 kg

DRUGS (3)
  1. CLARITHROMYCIN [Suspect]
     Indication: SINUSITIS
     Route: 048
     Dates: start: 20050128, end: 20050619
  2. CLARITHROMYCIN [Suspect]
     Route: 048
     Dates: start: 20050620, end: 20061113
  3. MEQUITAZINE [Concomitant]
     Indication: SINUSITIS
     Route: 048
     Dates: start: 20050620, end: 20061113

REACTIONS (3)
  - ANAEMIA [None]
  - COLITIS ULCERATIVE [None]
  - MELAENA [None]
